FAERS Safety Report 24177088 (Version 1)
Quarter: 2024Q3

REPORT INFORMATION
  Report Type: Spontaneous
  Country: US (occurrence: US)
  Receive Date: 20240806
  Receipt Date: 20240806
  Transmission Date: 20241016
  Serious: Yes (Other)
  Sender: AMNEAL
  Company Number: US-AMNEAL-2023-AMRX-02931

PATIENT
  Age: 44 Year
  Sex: Male

DRUGS (2)
  1. BACLOFEN [Suspect]
     Active Substance: BACLOFEN
     Indication: Product used for unknown indication
     Dosage: 4000 MCG/ML AT 1300 MICROGRAM, DAILY
     Route: 065
  2. BACLOFEN [Suspect]
     Active Substance: BACLOFEN
     Dosage: 500 MCG/ML AT 75 MICROGRAM, DAILY
     Route: 065

REACTIONS (3)
  - Drug withdrawal syndrome [Recovered/Resolved]
  - Device occlusion [Unknown]
  - Medical device site swelling [Recovered/Resolved]

NARRATIVE: CASE EVENT DATE: 20230807
